FAERS Safety Report 16039946 (Version 2)
Quarter: 2019Q2

REPORT INFORMATION
  Report Type: Spontaneous
  Country: US (occurrence: US)
  Receive Date: 20190306
  Receipt Date: 20190426
  Transmission Date: 20190711
  Serious: No
  Sender: FDA-Public Use
  Company Number: US-TEVA-2019-US-1011805

PATIENT
  Sex: Male
  Weight: 99.79 kg

DRUGS (7)
  1. GABAPENTIN TEVA [Suspect]
     Active Substance: GABAPENTIN
     Route: 065
  2. GABAPENTIN TEVA [Suspect]
     Active Substance: GABAPENTIN
     Indication: SCIATICA
     Dosage: 1800 MILLIGRAM DAILY;
     Route: 048
  3. GABAPENTIN TEVA [Suspect]
     Active Substance: GABAPENTIN
     Indication: NEUROPATHY PERIPHERAL
     Dosage: 3200 MILLIGRAM DAILY;
     Route: 048
  4. LEVOTHYROXINE. [Concomitant]
     Active Substance: LEVOTHYROXINE
     Route: 065
  5. KEPPRA [Concomitant]
     Active Substance: LEVETIRACETAM
     Route: 065
  6. VIMIPAT [Concomitant]
     Route: 065
  7. GABAPENTIN TEVA [Suspect]
     Active Substance: GABAPENTIN
     Dosage: 2400 MILLIGRAM DAILY;
     Route: 065
     Dates: start: 2016

REACTIONS (1)
  - Drug ineffective [Unknown]
